FAERS Safety Report 13786034 (Version 4)
Quarter: 2019Q2

REPORT INFORMATION
  Report Type: Spontaneous
  Country: FR (occurrence: FR)
  Receive Date: 20170725
  Receipt Date: 20190424
  Transmission Date: 20190711
  Serious: Yes (Hospitalization)
  Sender: FDA-Public Use
  Company Number: FR-ROCHE-1967461

PATIENT
  Age: 79 Year
  Sex: Female
  Weight: 59 kg

DRUGS (12)
  1. ZELBORAF [Suspect]
     Active Substance: VEMURAFENIB
     Indication: METASTATIC MALIGNANT MELANOMA
     Route: 048
     Dates: start: 20170620, end: 20170630
  2. COTELLIC [Suspect]
     Active Substance: COBIMETINIB
     Indication: METASTATIC MALIGNANT MELANOMA
     Route: 048
     Dates: start: 20170620, end: 20170630
  3. SIMVASTATINE [Concomitant]
     Active Substance: SIMVASTATIN
  4. MEMANTINE. [Concomitant]
     Active Substance: MEMANTINE
  5. PERINDOPRIL [Concomitant]
     Active Substance: PERINDOPRIL
  6. FUROSEMIDE. [Concomitant]
     Active Substance: FUROSEMIDE
  7. OXAZEPAM. [Concomitant]
     Active Substance: OXAZEPAM
  8. RIVAROXABAN [Concomitant]
     Active Substance: RIVAROXABAN
  9. NEBIVOLOL. [Concomitant]
     Active Substance: NEBIVOLOL
  10. CETIRIZINE [Concomitant]
     Active Substance: CETIRIZINE HYDROCHLORIDE
  11. NICORANDIL [Concomitant]
     Active Substance: NICORANDIL
  12. EZETIMIBE. [Concomitant]
     Active Substance: EZETIMIBE

REACTIONS (1)
  - Drug reaction with eosinophilia and systemic symptoms [Recovered/Resolved]

NARRATIVE: CASE EVENT DATE: 20170701
